FAERS Safety Report 11174307 (Version 1)
Quarter: 2015Q2

REPORT INFORMATION
  Report Type: Spontaneous
  Country: US (occurrence: US)
  Receive Date: 20150609
  Receipt Date: 20150609
  Transmission Date: 20150821
  Serious: No
  Sender: FDA-Public Use
  Company Number: US-BIOGENIDEC-2015BI077819

PATIENT
  Sex: Female

DRUGS (1)
  1. TECFIDERA [Suspect]
     Active Substance: DIMETHYL FUMARATE
     Indication: PRODUCT USED FOR UNKNOWN INDICATION

REACTIONS (6)
  - Balance disorder [Unknown]
  - Visual impairment [Unknown]
  - Paralysis [Unknown]
  - Muscular weakness [Unknown]
  - Hypoaesthesia [Unknown]
  - Limb discomfort [Unknown]
